FAERS Safety Report 10162790 (Version 1)
Quarter: 2014Q2

REPORT INFORMATION
  Report Type: Spontaneous
  Country: US (occurrence: US)
  Receive Date: 20140509
  Receipt Date: 20140509
  Transmission Date: 20141212
  Serious: Yes (Other)
  Sender: FDA-Public Use
  Company Number: US-ASTRAZENECA-2014SE30461

PATIENT
  Age: 70 Year
  Sex: Female
  Weight: 86.2 kg

DRUGS (8)
  1. NEXIUM [Suspect]
     Indication: GASTROOESOPHAGEAL REFLUX DISEASE
     Route: 048
     Dates: end: 20140407
  2. METOPROLOL SUCC [Suspect]
     Indication: BLOOD PRESSURE ABNORMAL
     Route: 048
     Dates: start: 200304
  3. PANTAPROZOLE [Suspect]
     Indication: GASTROOESOPHAGEAL REFLUX DISEASE
     Route: 065
     Dates: start: 201404
  4. DELZICOL DR [Concomitant]
     Indication: COLITIS ULCERATIVE
     Route: 048
     Dates: start: 2004
  5. CLOPIDOGREL [Concomitant]
     Indication: CARDIAC OPERATION
     Route: 048
     Dates: start: 200304
  6. FISH OIL COD LIVER [Concomitant]
     Route: 048
     Dates: start: 2011
  7. VALSARTAN HCTZ [Concomitant]
     Indication: BLOOD PRESSURE INCREASED
     Dosage: 160-12.5 MG DAILY
     Route: 048
     Dates: start: 200304
  8. ATORVASTATIN [Concomitant]
     Indication: BLOOD CHOLESTEROL INCREASED
     Route: 048
     Dates: start: 200304

REACTIONS (14)
  - Oesophageal haemorrhage [Unknown]
  - Injury [Unknown]
  - Helicobacter infection [Unknown]
  - Faeces discoloured [Unknown]
  - Sciatica [Unknown]
  - Blood cholesterol increased [Unknown]
  - Barrett^s oesophagus [Unknown]
  - Gastrooesophageal reflux disease [Unknown]
  - Large intestine polyp [Unknown]
  - Arthralgia [Unknown]
  - Constipation [Unknown]
  - Arthralgia [Unknown]
  - Intentional product misuse [Unknown]
  - Drug dose omission [Unknown]
